FAERS Safety Report 5697624-0 (Version None)
Quarter: 2008Q2

REPORT INFORMATION
  Report Type: 
  Country: None (occurrence: None)
  Receive Date: 20080408
  Receipt Date: 20080328
  Transmission Date: 20081010
  Serious: Yes (Hospitalization)
  Sender: FDA-Public Use
  Company Number: US-ROCHE-552300

PATIENT
  Age: 56 Year
  Sex: Female

DRUGS (3)
  1. BONIVA [Suspect]
     Indication: OSTEOPENIA
     Dosage: DISCONTINUED AFTER 3RD DOSE FORM REPORTED AS PILLS
     Route: 065
     Dates: start: 20070401
  2. MULTI-VITAMINS [Concomitant]
     Dosage: DRUG REPORTED AS: VITAMIN PILLS
  3. CALCIUM [Concomitant]
     Dosage: DRUG REPORTED AS: CALCIUM PILLS

REACTIONS (7)
  - BLOOD POTASSIUM DECREASED [None]
  - CHEST DISCOMFORT [None]
  - CHEST PAIN [None]
  - DYSPEPSIA [None]
  - DYSPHAGIA [None]
  - ERUCTATION [None]
  - URINARY TRACT INFECTION [None]
